FAERS Safety Report 4452581-X (Version None)
Quarter: 2004Q3

REPORT INFORMATION
  Report Type: 
  Country: None (occurrence: None)
  Receive Date: 20040916
  Receipt Date: 20040904
  Transmission Date: 20050211
  Serious: Yes (Death)
  Sender: FDA-Public Use
  Company Number: 2001063768JP

PATIENT
  Age: 7 Year
  Sex: Male

DRUGS (11)
  1. DAUNORUBICIN HYDROCHLORIDE [Suspect]
     Indication: ACUTE LYMPHOCYTIC LEUKAEMIA
     Dosage: 45 MG/M2
  2. CYTOSAR-U [Suspect]
     Indication: ACUTE LYMPHOCYTIC LEUKAEMIA
     Dosage: 500 MG/M2, CYCLIC (SEE IMAGE)
  3. DOXORUBICIN HYDROCHLORIDE [Suspect]
     Indication: ACUTE LYMPHOCYTIC LEUKAEMIA
     Dosage: 25 MG/M2, CYCLIC,
  4. VINCRISTINE [Suspect]
     Indication: ACUTE LYMPHOCYTIC LEUKAEMIA
     Dosage: 2MG/M2, CYCLIC
  5. PREDNISOLONE [Suspect]
     Indication: ACUTE LYMPHOCYTIC LEUKAEMIA
     Dosage: 60 MG/M2,
  6. L-ASPARAGINASE (ASPARAGINASE) [Suspect]
     Indication: ACUTE LYMPHOCYTIC LEUKAEMIA
     Dosage: 10000 U/M2, CYCLIC
  7. METHOTREXATE [Suspect]
     Indication: ACUTE LYMPHOCYTIC LEUKAEMIA
  8. ENOCITABINE (ENOCITABINE) [Suspect]
     Indication: ACUTE LYMPHOCYTIC LEUKAEMIA
     Dosage: 150 MG/M2, CYCLIC
  9. MERCAPTOPURINE [Suspect]
     Dosage: 120 MG/M2, CYCLIC
  10. CYCLOPHOSPHAMIDE [Suspect]
     Indication: ACUTE LYMPHOCYTIC LEUKAEMIA
     Dosage: 600 MG/M2, CYCLIC (SEE IMAGE)
  11. DEXAMETHASONE [Suspect]
     Indication: ACUTE LYMPHOCYTIC LEUKAEMIA
     Dosage: 8 MG/M2, CYCLIC

REACTIONS (5)
  - METASTASES TO BONE [None]
  - METASTASES TO LIVER [None]
  - METASTASES TO LUNG [None]
  - NEURILEMMOMA [None]
  - TREATMENT RELATED SECONDARY MALIGNANCY [None]
